FAERS Safety Report 16279382 (Version 1)
Quarter: 2019Q2

REPORT INFORMATION
  Report Type: Spontaneous
  Country: AU (occurrence: AU)
  Receive Date: 20190507
  Receipt Date: 20190507
  Transmission Date: 20190711
  Serious: Yes (Other)
  Sender: FDA-Public Use
  Company Number: AU-ROCHE-2312985

PATIENT
  Age: 61 Year
  Sex: Male

DRUGS (1)
  1. OMALIZUMAB. [Suspect]
     Active Substance: OMALIZUMAB
     Indication: PEMPHIGOID
     Route: 065

REACTIONS (4)
  - Intentional product use issue [Unknown]
  - Pemphigoid [Unknown]
  - Off label use [Unknown]
  - Condition aggravated [Unknown]
